FAERS Safety Report 17842150 (Version 1)
Quarter: 2020Q2

REPORT INFORMATION
  Report Type: Report from Study
  Country: SI (occurrence: SI)
  Receive Date: 20200529
  Receipt Date: 20200529
  Transmission Date: 20200714
  Serious: Yes (Other)
  Sender: FDA-Public Use
  Company Number: SI-ROCHE-2608389

PATIENT
  Sex: Female

DRUGS (3)
  1. BEVACIZUMAB. [Suspect]
     Active Substance: BEVACIZUMAB
     Indication: OVARIAN EPITHELIAL CANCER
     Route: 042
  2. PACLITAXEL. [Concomitant]
     Active Substance: PACLITAXEL
  3. CARBOPLATIN. [Concomitant]
     Active Substance: CARBOPLATIN

REACTIONS (12)
  - Arrhythmia [Unknown]
  - Proteinuria [Unknown]
  - Central nervous system haemorrhage [Unknown]
  - Uveitis [Unknown]
  - Embolism venous [Unknown]
  - Hypertension [Unknown]
  - Pain [Unknown]
  - Urogenital fistula [Unknown]
  - Musculoskeletal pain [Unknown]
  - Intestinal haemorrhage [Unknown]
  - Arthralgia [Unknown]
  - Haemorrhage [Unknown]
